FAERS Safety Report 24141244 (Version 1)
Quarter: 2024Q3

REPORT INFORMATION
  Report Type: Spontaneous
  Country: US (occurrence: US)
  Receive Date: 20240726
  Receipt Date: 20240726
  Transmission Date: 20241016
  Serious: No
  Sender: MERCK
  Company Number: US-009507513-2407USA011350

PATIENT
  Weight: 46.7 kg

DRUGS (1)
  1. DIFICID [Suspect]
     Active Substance: FIDAXOMICIN
     Dosage: 200 MG TWICE A DAY
     Route: 048
     Dates: start: 20240611, end: 20240621

REACTIONS (2)
  - Product prescribing issue [Unknown]
  - No adverse event [Unknown]
